FAERS Safety Report 12653915 (Version 3)
Quarter: 2017Q1

REPORT INFORMATION
  Report Type: Report from Study
  Country: FR (occurrence: FR)
  Receive Date: 20160816
  Receipt Date: 20170203
  Transmission Date: 20170428
  Serious: Yes (Other)
  Sender: FDA-Public Use
  Company Number: FR-ROCHE-1814049

PATIENT
  Age: 7 Year
  Sex: Male

DRUGS (10)
  1. HYDROCORTISONE. [Concomitant]
     Active Substance: HYDROCORTISONE
     Route: 048
     Dates: start: 20071101
  2. SOMATROPIN [Suspect]
     Active Substance: SOMATROPIN
     Indication: GROWTH HORMONE DEFICIENCY
     Route: 058
     Dates: start: 20090527, end: 201012
  3. SOMATROPIN [Suspect]
     Active Substance: SOMATROPIN
     Route: 058
     Dates: start: 201012, end: 201206
  4. SOMATROPIN [Suspect]
     Active Substance: SOMATROPIN
     Route: 058
     Dates: start: 201206, end: 201401
  5. LEVOTHYROX [Concomitant]
     Active Substance: LEVOTHYROXINE
     Route: 048
     Dates: start: 20071101
  6. MINIRIN [Concomitant]
     Active Substance: DESMOPRESSIN ACETATE
     Indication: ENDOCRINE DISORDER
     Route: 048
     Dates: start: 20080801
  7. SOMATROPIN [Suspect]
     Active Substance: SOMATROPIN
     Indication: FAILURE TO THRIVE
     Dosage: 10 MG/2ML
     Route: 058
     Dates: start: 20070201, end: 200712
  8. HYDROCORTISONE. [Concomitant]
     Active Substance: HYDROCORTISONE
     Indication: ENDOCRINE DISORDER
     Route: 048
     Dates: end: 20071101
  9. SOMATROPIN [Suspect]
     Active Substance: SOMATROPIN
     Route: 058
     Dates: start: 201401
  10. LEVOTHYROX [Concomitant]
     Active Substance: LEVOTHYROXINE
     Indication: ENDOCRINE DISORDER
     Route: 048
     Dates: end: 20071101

REACTIONS (1)
  - Germ cell cancer [Recovered/Resolved]

NARRATIVE: CASE EVENT DATE: 200712
